FAERS Safety Report 6536508-2 (Version None)
Quarter: 2010Q1

REPORT INFORMATION
  Report Type: 
  Country: None (occurrence: None)
  Receive Date: 20100106
  Receipt Date: 20091224
  Transmission Date: 20100710
  Serious: Yes (Other)
  Sender: FDA-Public Use
  Company Number: A0836785A

PATIENT
  Age: 73 Year
  Sex: Female

DRUGS (3)
  1. CALCIUM CARBONATE TABLET (CALCIUM CARBONATE) WINTERGREEN [Suspect]
     Indication: FLATULENCE
     Dosage: ORAL
     Route: 048
     Dates: start: 20090701, end: 20091112
  2. IRON SALT [Concomitant]
  3. VITAMIN B COMPLEX CAP [Concomitant]

REACTIONS (8)
  - ANAEMIA [None]
  - DRUG ADMINISTRATION ERROR [None]
  - ERUCTATION [None]
  - FLATULENCE [None]
  - HELICOBACTER INFECTION [None]
  - INCORRECT DOSE ADMINISTERED [None]
  - MALAISE [None]
  - NAUSEA [None]
